FAERS Safety Report 4380272-2 (Version None)
Quarter: 2004Q2

REPORT INFORMATION
  Report Type: 
  Country: None (occurrence: None)
  Receive Date: 20040618
  Receipt Date: 20040608
  Transmission Date: 20050107
  Serious: Yes (Other)
  Sender: FDA-Public Use
  Company Number: PHBS2004DE07703

PATIENT
  Age: 64 Year
  Sex: Female

DRUGS (6)
  1. CYCLOSPORINE [Suspect]
     Indication: STEM CELL TRANSPLANT
     Route: 065
  2. FLUDARABINE PHOSPHATE [Suspect]
     Indication: STEM CELL TRANSPLANT
     Dosage: 30 MG/M2/D
     Route: 065
  3. CARMUSTINE [Suspect]
     Indication: STEM CELL TRANSPLANT
     Dosage: 150 MG/M2/D
     Route: 065
  4. MELPHALAN [Suspect]
     Indication: STEM CELL TRANSPLANT
     Dosage: 110 MG/M2/D
     Route: 065
  5. ATGAM [Suspect]
     Indication: STEM CELL TRANSPLANT
     Dosage: 20 MG/KG/D
  6. MYCOPHENOLATE MOFETIL [Suspect]
     Indication: STEM CELL TRANSPLANT

REACTIONS (3)
  - DIARRHOEA [None]
  - GASTROENTERITIS CRYPTOSPORIDIAL [None]
  - LYMPHOPENIA [None]
